FAERS Safety Report 9914570 (Version 3)
Quarter: 2014Q1

REPORT INFORMATION
  Report Type: Report from Study
  Country: TW (occurrence: TW)
  Receive Date: 20140220
  Receipt Date: 20140303
  Transmission Date: 20141002
  Serious: Yes (Death, Hospitalization, Other)
  Sender: FDA-Public Use
  Company Number: TW-ABBVIE-14P-153-1191786-00

PATIENT
  Age: 46 Year
  Sex: Female
  Weight: 95 kg

DRUGS (2)
  1. HUMIRA [Suspect]
     Indication: PSORIATIC ARTHROPATHY
     Route: 058
     Dates: start: 20120612, end: 20131224
  2. MTX [Concomitant]
     Indication: PSORIATIC ARTHROPATHY
     Dosage: 6 PC
     Route: 048
     Dates: start: 20120612

REACTIONS (5)
  - Multi-organ failure [Fatal]
  - Rectal cancer [Unknown]
  - Metastases to liver [Unknown]
  - Dyspnoea [Unknown]
  - Sepsis [Fatal]
